FAERS Safety Report 11235589 (Version 1)
Quarter: 2015Q3

REPORT INFORMATION
  Report Type: Spontaneous
  Country: PH (occurrence: PH)
  Receive Date: 20150702
  Receipt Date: 20150702
  Transmission Date: 20151125
  Serious: Yes (Death)
  Sender: FDA-Public Use
  Company Number: PH-009507513-1507PHL000386

PATIENT
  Sex: Female

DRUGS (1)
  1. JANUMET [Suspect]
     Active Substance: METFORMIN HYDROCHLORIDE\SITAGLIPTIN PHOSPHATE
     Indication: DIABETES MELLITUS
     Dosage: 1 TABLET, QD
     Route: 048

REACTIONS (2)
  - Inappropriate schedule of drug administration [Unknown]
  - Diabetic complication [Fatal]
